FAERS Safety Report 7677050-5 (Version None)
Quarter: 2011Q3

REPORT INFORMATION
  Report Type: 
  Country: None (occurrence: None)
  Receive Date: 20110810
  Receipt Date: 20110810
  Transmission Date: 20111222
  Serious: Yes (Hospitalization)
  Sender: FDA-Public Use
  Company Number: None

PATIENT
  Age: 65 Year
  Sex: Male
  Weight: 99.9 kg

DRUGS (2)
  1. FLUDARABINE PHOSPHATE [Suspect]
     Indication: CHRONIC LYMPHOCYTIC LEUKAEMIA
     Dosage: 40 MG ONCE IV
     Route: 042
     Dates: start: 20110803, end: 20110803
  2. CYCLOPHOSPHAMIDE [Suspect]
     Indication: CHRONIC LYMPHOCYTIC LEUKAEMIA
     Dosage: 400 MG ONCE IV
     Route: 042
     Dates: start: 20110803, end: 20110803

REACTIONS (3)
  - CYSTITIS HAEMORRHAGIC [None]
  - HAEMATURIA [None]
  - GASTRIC HAEMORRHAGE [None]
